FAERS Safety Report 8815871 (Version 3)
Quarter: 2012Q4

REPORT INFORMATION
  Report Type: 
  Country: JP (occurrence: JP)
  Receive Date: 20120928
  Receipt Date: 20121024
  Transmission Date: 20130627
  Serious: Yes (Other)
  Sender: FDA-Public Use
  Company Number: JP-ALLERGAN-1213327US

PATIENT
  Age: 78 Year
  Sex: Female

DRUGS (5)
  1. LUMIGAN [Suspect]
     Indication: NORMAL TENSION GLAUCOMA
     Dosage: 2 Gtt, qd
     Route: 047
     Dates: start: 20100226
  2. KARY UNI [Concomitant]
     Indication: DRUG USE FOR UNKNOWN INDICATION
     Dosage: UNK
     Dates: start: 20070918
  3. TRUSOPT [Concomitant]
     Indication: DRUG USE FOR UNKNOWN INDICATION
     Dosage: UNK
     Route: 047
     Dates: start: 20100830
  4. NEO-MEDROL EE OINTMENT [Concomitant]
     Indication: MARGINAL BLEPHARITIS
     Dosage: UNK
     Dates: start: 20050527
  5. HYALEIN [Concomitant]
     Indication: DRUG USE FOR UNKNOWN INDICATION
     Dosage: UNK
     Route: 047

REACTIONS (2)
  - Visual field defect [Not Recovered/Not Resolved]
  - Punctate keratitis [Recovered/Resolved]
